FAERS Safety Report 20004916 (Version 1)
Quarter: 2021Q4

REPORT INFORMATION
  Report Type: Spontaneous
  Country: US (occurrence: US)
  Receive Date: 20211028
  Receipt Date: 20211028
  Transmission Date: 20220303
  Serious: Yes (Other)
  Sender: FDA-Public Use
  Company Number: US-GLAXOSMITHKLINE-US2021GSK222478

PATIENT
  Sex: Female

DRUGS (10)
  1. ZANTAC [Suspect]
     Active Substance: RANITIDINE HYDROCHLORIDE
     Indication: Gastric disorder
     Dosage: 250 MG, BID
     Route: 065
     Dates: start: 201401, end: 201911
  2. ZANTAC [Suspect]
     Active Substance: RANITIDINE HYDROCHLORIDE
     Dosage: 250 MG, QD
     Route: 065
     Dates: start: 201401, end: 201911
  3. ZANTAC [Suspect]
     Active Substance: RANITIDINE HYDROCHLORIDE
     Indication: Gastric disorder
     Dosage: 250 MG, BID
     Route: 065
     Dates: start: 201401, end: 201911
  4. ZANTAC [Suspect]
     Active Substance: RANITIDINE HYDROCHLORIDE
     Dosage: 250 MG, QD
     Route: 065
     Dates: start: 201401, end: 201911
  5. ZANTAC [Suspect]
     Active Substance: RANITIDINE HYDROCHLORIDE
     Indication: Gastric disorder
     Dosage: 250 MG, BID
     Route: 065
     Dates: start: 201401, end: 201911
  6. ZANTAC [Suspect]
     Active Substance: RANITIDINE HYDROCHLORIDE
     Dosage: 250 MG, QD
     Route: 065
     Dates: start: 201401, end: 201911
  7. RANITIDINE [Suspect]
     Active Substance: RANITIDINE
     Indication: Gastric disorder
     Dosage: 250 MG, BID
     Route: 065
     Dates: start: 201401, end: 201911
  8. RANITIDINE [Suspect]
     Active Substance: RANITIDINE
     Dosage: 250 MG, QD
     Route: 065
     Dates: start: 201401, end: 201911
  9. RANITIDINE [Suspect]
     Active Substance: RANITIDINE
     Dosage: 250 MG, AS NEEDED
     Route: 065
     Dates: start: 201801, end: 201911
  10. RANITIDINE [Suspect]
     Active Substance: RANITIDINE
     Indication: Gastric disorder
     Dosage: 250 MG, AS NEEDED
     Route: 065
     Dates: start: 201801, end: 201911

REACTIONS (1)
  - Colorectal cancer [Unknown]
